FAERS Safety Report 23500378 (Version 4)
Quarter: 2024Q1

REPORT INFORMATION
  Report Type: Spontaneous
  Country: JP (occurrence: None)
  Receive Date: 20240208
  Receipt Date: 20240323
  Transmission Date: 20240410
  Serious: Yes (Other)
  Sender: FDA-Public Use
  Company Number: JP-ROCHE-3505910

PATIENT
  Age: 15 Year
  Sex: Female

DRUGS (4)
  1. XOFLUZA [Suspect]
     Active Substance: BALOXAVIR MARBOXIL
     Indication: Influenza
     Route: 048
     Dates: start: 20240203, end: 20240203
  2. MEQUITAZINE [Concomitant]
     Active Substance: MEQUITAZINE
     Indication: Influenza
     Route: 048
     Dates: start: 20240203, end: 20240206
  3. CARBOCYSTEINE [Concomitant]
     Active Substance: CARBOCYSTEINE
     Indication: Influenza
     Dosage: 750 MG/DAY
     Route: 048
     Dates: start: 20240203, end: 20240210
  4. BROMISOVAL\DIHYDROCODEINE PHOSPHATE\DYPHYLLINE\METHYLEPHEDRINE HYDROCH [Concomitant]
     Active Substance: BROMISOVAL\DIHYDROCODEINE PHOSPHATE\DYPHYLLINE\METHYLEPHEDRINE HYDROCHLORIDE, (+/-)-
     Indication: Influenza
     Route: 048
     Dates: start: 20240203, end: 20240210

REACTIONS (1)
  - Colitis ischaemic [Recovered/Resolved]

NARRATIVE: CASE EVENT DATE: 20240203
